FAERS Safety Report 6082015-3 (Version None)
Quarter: 2009Q1

REPORT INFORMATION
  Report Type: 
  Country: None (occurrence: None)
  Receive Date: 20090218
  Receipt Date: 20080822
  Transmission Date: 20090719
  Serious: No
  Sender: FDA-Public Use
  Company Number: US-BRISTOL-MYERS SQUIBB COMPANY-14312078

PATIENT
  Sex: Male

DRUGS (2)
  1. GLUCOPHAGE [Suspect]
  2. METFORMIN HCL [Suspect]

REACTIONS (1)
  - THERAPEUTIC RESPONSE DECREASED [None]
